FAERS Safety Report 7048071-0 (Version None)
Quarter: 2010Q4

REPORT INFORMATION
  Report Type: 
  Country: None (occurrence: None)
  Receive Date: 20101015
  Receipt Date: 20101006
  Transmission Date: 20110411
  Serious: Yes (Death)
  Sender: FDA-Public Use
  Company Number: B0679252A

PATIENT
  Age: 77 Year
  Sex: Female
  Weight: 90 kg

DRUGS (3)
  1. ARIXTRA [Suspect]
     Indication: PULMONARY EMBOLISM
     Dosage: 7.5MG PER DAY
     Route: 065
  2. SINTROM [Concomitant]
  3. ANTIHYPERTENSIVE [Concomitant]

REACTIONS (2)
  - HAEMOPTYSIS [None]
  - LUNG NEOPLASM [None]
